FAERS Safety Report 25147244 (Version 3)
Quarter: 2025Q2

REPORT INFORMATION
  Report Type: Spontaneous
  Country: US (occurrence: US)
  Receive Date: 20250401
  Receipt Date: 20250611
  Transmission Date: 20250716
  Serious: No
  Sender: ABBVIE
  Company Number: US-ABBVIE-6204341

PATIENT
  Age: 74 Year
  Sex: Female

DRUGS (3)
  1. RESTASIS [Suspect]
     Active Substance: CYCLOSPORINE
     Indication: Dry eye
     Route: 047
     Dates: start: 20250311, end: 20250311
  2. RESTASIS [Suspect]
     Active Substance: CYCLOSPORINE
     Dosage: ONE DROP IN EACH EYE TWICE A DAY
     Route: 047
     Dates: start: 202503, end: 20250325
  3. RESTASIS [Suspect]
     Active Substance: CYCLOSPORINE
     Dosage: ONE DROP IN EACH EYE TWICE A DAY FOR TWO DAYS
     Route: 047
     Dates: start: 20250308, end: 20250310

REACTIONS (8)
  - Ocular hyperaemia [Recovered/Resolved]
  - Eye irritation [Recovered/Resolved]
  - Eye irritation [Recovered/Resolved]
  - Drug hypersensitivity [Recovered/Resolved]
  - Blister [Recovered/Resolved]
  - Eye pain [Recovered/Resolved]
  - Conjunctivitis allergic [Recovered/Resolved]
  - Eyelid oedema [Recovered/Resolved]

NARRATIVE: CASE EVENT DATE: 20250301
